FAERS Safety Report 12428726 (Version 4)
Quarter: 2016Q2

REPORT INFORMATION
  Report Type: Report from Study
  Country: US (occurrence: US)
  Receive Date: 20160602
  Receipt Date: 20160621
  Transmission Date: 20160815
  Serious: No
  Sender: FDA-Public Use
  Company Number: US-AMGEN-USASL2016069144

PATIENT
  Age: 63 Year
  Sex: Female

DRUGS (4)
  1. ENBREL [Suspect]
     Active Substance: ETANERCEPT
     Indication: RHEUMATOID ARTHRITIS
     Dosage: 50 MG, 2 TIMES/WK
     Route: 065
  2. METHOTREXATE [Concomitant]
     Active Substance: METHOTREXATE
     Dosage: UNK
  3. LYRICA [Concomitant]
     Active Substance: PREGABALIN
     Dosage: UNK
  4. PREDNISONE. [Concomitant]
     Active Substance: PREDNISONE
     Dosage: UNK

REACTIONS (7)
  - Drug effect incomplete [Not Recovered/Not Resolved]
  - Injection site pain [Unknown]
  - Paraesthesia [Unknown]
  - Anxiety [Not Recovered/Not Resolved]
  - Hyperhidrosis [Unknown]
  - Pain [Not Recovered/Not Resolved]
  - Dizziness [Unknown]

NARRATIVE: CASE EVENT DATE: 2016
